FAERS Safety Report 18228519 (Version 3)
Quarter: 2023Q2

REPORT INFORMATION
  Report Type: Report from Study
  Country: ES (occurrence: ES)
  Receive Date: 20200903
  Receipt Date: 20230627
  Transmission Date: 20230721
  Serious: Yes (Hospitalization, Other)
  Sender: FDA-Public Use
  Company Number: ES-SHIRE-ES202027815

PATIENT
  Age: 11 Year
  Sex: Male
  Weight: 30 kg

DRUGS (8)
  1. IDURSULFASE [Suspect]
     Active Substance: IDURSULFASE
     Indication: Mucopolysaccharidosis II
     Dosage: UNK, 1/WEEK
     Route: 042
     Dates: start: 20160309
  2. VANCOMYCIN [Concomitant]
     Active Substance: VANCOMYCIN
     Indication: Infection
     Dosage: UNK
     Route: 042
     Dates: start: 20200803, end: 20200818
  3. TEICOPLANIN [Concomitant]
     Active Substance: TEICOPLANIN
     Indication: Infection
     Dosage: UNK
     Route: 042
     Dates: start: 20200805, end: 20200811
  4. RISPERDAL [Concomitant]
     Active Substance: RISPERIDONE
     Indication: Antipsychotic therapy
     Dosage: UNK
     Route: 048
     Dates: start: 20150731
  5. Rubifen [Concomitant]
     Indication: Psychomotor hyperactivity
     Dosage: UNK
     Route: 048
     Dates: start: 20151009, end: 20161209
  6. ACETAMINOPHEN [Concomitant]
     Active Substance: ACETAMINOPHEN
     Indication: Pain
     Dosage: UNK
     Route: 048
     Dates: start: 20170517, end: 20170521
  7. IBUPROFEN [Concomitant]
     Active Substance: IBUPROFEN
     Indication: Pain
     Dosage: UNK
     Route: 048
     Dates: start: 20170517, end: 20170521
  8. AMOXICILLIN [Concomitant]
     Active Substance: AMOXICILLIN
     Indication: Pneumonia
     Dosage: UNK
     Route: 048
     Dates: start: 20221228, end: 20230104

REACTIONS (1)
  - Catheter site infection [Recovered/Resolved]

NARRATIVE: CASE EVENT DATE: 20200803
